FAERS Safety Report 4599337-5 (Version None)
Quarter: 2005Q1

REPORT INFORMATION
  Report Type: 
  Country: None (occurrence: None)
  Receive Date: 20050302
  Receipt Date: 20050221
  Transmission Date: 20050727
  Serious: Yes (Disabling, Other)
  Sender: FDA-Public Use
  Company Number: NLWYE437418FEB05

PATIENT
  Age: 72 Year
  Sex: Male

DRUGS (5)
  1. EFFEXOR XR [Suspect]
     Indication: DEPRESSION
     Dosage: 75 MG ORAL
     Route: 048
     Dates: start: 20050214, end: 20050201
  2. REMERON [Suspect]
     Indication: DEPRESSION
     Dosage: 30 MG ORAL
     Route: 048
  3. REMERON [Suspect]
     Indication: INSOMNIA
     Dosage: 30 MG ORAL
     Route: 048
  4. ALPRAZOLAM [Concomitant]
  5. FLURAZEPAM [Concomitant]

REACTIONS (1)
  - DRUG INTERACTION [None]
